FAERS Safety Report 6463801-4 (Version None)
Quarter: 2009Q4

REPORT INFORMATION
  Report Type: 
  Country: None (occurrence: None)
  Receive Date: 20091201
  Receipt Date: 20091126
  Transmission Date: 20100525
  Serious: Yes (Hospitalization, Disabling)
  Sender: FDA-Public Use
  Company Number: JP-ASTRAZENECA-2003AP03743

PATIENT
  Age: 23154 Day
  Sex: Male

DRUGS (7)
  1. IRESSA [Suspect]
     Indication: NON-SMALL CELL LUNG CANCER
     Route: 048
     Dates: start: 20030930, end: 20031015
  2. IRESSA [Suspect]
     Indication: LUNG SQUAMOUS CELL CARCINOMA STAGE UNSPECIFIED
     Route: 048
     Dates: start: 20030930, end: 20031015
  3. MUCOSTA [Concomitant]
     Route: 048
     Dates: start: 20031009, end: 20031015
  4. SHINPRAL [Concomitant]
     Route: 048
  5. MEVALOTIN [Concomitant]
     Route: 048
  6. JUVELA NICOTINATE [Concomitant]
     Route: 048
  7. RIBALL [Concomitant]
     Route: 048

REACTIONS (1)
  - LUNG DISORDER [None]
